FAERS Safety Report 4834477-4 (Version None)
Quarter: 2005Q4

REPORT INFORMATION
  Report Type: 
  Country: None (occurrence: None)
  Receive Date: 20051122
  Receipt Date: 20041220
  Transmission Date: 20060501
  Serious: No
  Sender: FDA-Public Use
  Company Number: US-BRISTOL-MYERS SQUIBB COMPANY-12799573

PATIENT
  Age: 70 Year
  Sex: Male

DRUGS (3)
  1. PRAVACHOL [Suspect]
     Indication: BLOOD CHOLESTEROL
     Route: 048
  2. PLAVIX [Concomitant]
  3. ZANTAC [Concomitant]

REACTIONS (2)
  - FATIGUE [None]
  - MYALGIA [None]
